FAERS Safety Report 12565415 (Version 5)
Quarter: 2016Q4

REPORT INFORMATION
  Report Type: Report from Study
  Country: TW (occurrence: TW)
  Receive Date: 20160718
  Receipt Date: 20161108
  Transmission Date: 20170207
  Serious: Yes (Hospitalization)
  Sender: FDA-Public Use
  Company Number: TW-EISAI MEDICAL RESEARCH-EC-2016-018466

PATIENT
  Age: 15 Year
  Sex: Male
  Weight: 27 kg

DRUGS (4)
  1. VALPROATE SODIUM. [Concomitant]
     Active Substance: VALPROATE SODIUM
  2. BETHANECHOL HCL [Concomitant]
  3. FYCOMPA [Suspect]
     Active Substance: PERAMPANEL
     Indication: EPILEPSY
     Route: 048
     Dates: start: 20160518
  4. CLOBAZAM [Concomitant]
     Active Substance: CLOBAZAM

REACTIONS (7)
  - Epilepsy [Not Recovered/Not Resolved]
  - Haematuria [Recovered/Resolved]
  - Gastritis [Recovered/Resolved]
  - Haematemesis [Recovered/Resolved]
  - Pneumonia [Recovered/Resolved]
  - Status epilepticus [Recovering/Resolving]
  - Pyrexia [Not Recovered/Not Resolved]

NARRATIVE: CASE EVENT DATE: 20160708
